FAERS Safety Report 25220842 (Version 1)
Quarter: 2025Q2

REPORT INFORMATION
  Report Type: Spontaneous
  Country: US (occurrence: US)
  Receive Date: 20250421
  Receipt Date: 20250421
  Transmission Date: 20250717
  Serious: Yes (Other)
  Sender: MYLAN
  Company Number: US-MYLANLABS-2025M1034060

PATIENT
  Age: 62 Year
  Sex: Male

DRUGS (4)
  1. LORATADINE [Suspect]
     Active Substance: LORATADINE
     Indication: Obstructive sleep apnoea syndrome
  2. LORATADINE [Suspect]
     Active Substance: LORATADINE
     Route: 065
  3. LORATADINE [Suspect]
     Active Substance: LORATADINE
     Route: 065
  4. LORATADINE [Suspect]
     Active Substance: LORATADINE

REACTIONS (2)
  - Treatment failure [Unknown]
  - Off label use [Unknown]
